FAERS Safety Report 15435219 (Version 2)
Quarter: 2018Q4

REPORT INFORMATION
  Report Type: Spontaneous
  Country: TW (occurrence: TW)
  Receive Date: 20180927
  Receipt Date: 20181001
  Transmission Date: 20190204
  Serious: Yes (Other)
  Sender: FDA-Public Use
  Company Number: TW-PFIZER INC-2018383237

PATIENT
  Age: 36 Year
  Sex: Female

DRUGS (4)
  1. MISOPROSTOL. [Suspect]
     Active Substance: MISOPROSTOL
     Indication: ABORTION INDUCED
     Dosage: 600 UG, TWO DAYS LATER
     Route: 048
  2. DOXYCYCLINE. [Concomitant]
     Active Substance: DOXYCYCLINE
     Indication: PROPHYLAXIS
     Dosage: 100 MG, 2X/DAY(TWICE DAILY FOR SEVEN DAYS)
     Route: 048
  3. MIFEPRISTONE [Suspect]
     Active Substance: MIFEPRISTONE
     Indication: ABORTION
     Dosage: 600 MG, UNK
     Route: 048
  4. MISOPROSTOL. [Suspect]
     Active Substance: MISOPROSTOL
     Dosage: 400 UG, 2X/DAY(TWICE DAILY FOR SEVEN DAYS)
     Route: 048

REACTIONS (2)
  - Drug ineffective for unapproved indication [Recovered/Resolved]
  - Ovarian abscess [Recovered/Resolved]
